FAERS Safety Report 8839668 (Version 1)
Quarter: 2012Q4

REPORT INFORMATION
  Report Type: Spontaneous
  Country: FR (occurrence: None)
  Receive Date: 20121011
  Receipt Date: 20121011
  Transmission Date: 20130627
  Serious: Yes (Other)
  Sender: FDA-Public Use
  Company Number: 1443579

PATIENT
  Age: 53 Year
  Sex: Female

DRUGS (6)
  1. VINCRISTINE SULFATE [Suspect]
  2. CORTICOSTEROIDS [Suspect]
  3. CYCLOPHOSPHAMIDE [Suspect]
  4. ADRIAMYCIN [Suspect]
  5. PREDNISONE [Suspect]
  6. PEGINTERFERON ALFA [Suspect]

REACTIONS (1)
  - Hodgkin^s disease [None]
